FAERS Safety Report 20890900 (Version 3)
Quarter: 2022Q3

REPORT INFORMATION
  Report Type: Spontaneous
  Country: US (occurrence: None)
  Receive Date: 20220530
  Receipt Date: 20220714
  Transmission Date: 20221027
  Serious: No
  Sender: FDA-Public Use
  Company Number: 2022A197766

PATIENT

DRUGS (1)
  1. EVUSHELD [Suspect]
     Active Substance: CILGAVIMAB\TIXAGEVIMAB
     Indication: COVID-19 prophylaxis
     Dosage: 600.0MG UNKNOWN
     Route: 030
     Dates: start: 20220524

REACTIONS (5)
  - Dry throat [Recovered/Resolved]
  - Lip disorder [Unknown]
  - Pruritus [Recovered/Resolved]
  - Systemic lupus erythematosus [Unknown]
  - Product use issue [Unknown]

NARRATIVE: CASE EVENT DATE: 20220524
